FAERS Safety Report 7084060-8 (Version None)
Quarter: 2010Q4

REPORT INFORMATION
  Report Type: 
  Country: None (occurrence: None)
  Receive Date: 20101026
  Receipt Date: 20101021
  Transmission Date: 20110411
  Serious: Yes (Other)
  Sender: FDA-Public Use
  Company Number: 2010SP033158

PATIENT
  Age: 55 Year
  Sex: Female

DRUGS (3)
  1. REBETOL [Suspect]
     Indication: PRODUCT USED FOR UNKNOWN INDICATION
     Dosage: 1000 MG;QD;PO
     Route: 048
     Dates: start: 20100423, end: 20100521
  2. PEGASYS [Suspect]
     Indication: PRODUCT USED FOR UNKNOWN INDICATION
     Dosage: 180 MCG;QW;SC ; 135 MCG;QW;SC
     Route: 058
     Dates: start: 20100423, end: 20100513
  3. PEGASYS [Suspect]
     Indication: PRODUCT USED FOR UNKNOWN INDICATION
     Dosage: 180 MCG;QW;SC ; 135 MCG;QW;SC
     Route: 058
     Dates: start: 20100514, end: 20100521

REACTIONS (8)
  - ABDOMINAL PAIN UPPER [None]
  - ASPHYXIA [None]
  - DIZZINESS [None]
  - DRUG INTERACTION [None]
  - EYE SWELLING [None]
  - MALAISE [None]
  - PAIN IN EXTREMITY [None]
  - PRURITUS [None]
